FAERS Safety Report 9222644 (Version 1)
Quarter: 2013Q2

REPORT INFORMATION
  Report Type: Spontaneous
  Country: JP (occurrence: JP)
  Receive Date: 20130410
  Receipt Date: 20130410
  Transmission Date: 20140414
  Serious: Yes (Other)
  Sender: FDA-Public Use
  Company Number: PHHY2013JP033873

PATIENT
  Age: 69 Year
  Sex: Male

DRUGS (3)
  1. OXALIPLATIN [Suspect]
     Indication: RECTAL CANCER RECURRENT
     Dates: start: 200803
  2. 5-FLUOROURACIL [Suspect]
     Indication: RECTAL CANCER RECURRENT
     Dates: start: 200803
  3. FOLINIC ACID [Suspect]
     Indication: RECTAL CANCER RECURRENT
     Dates: start: 200803

REACTIONS (3)
  - Fatigue [Recovered/Resolved]
  - Neutropenia [Recovered/Resolved]
  - Drug ineffective [Unknown]
